FAERS Safety Report 8473976 (Version 2)
Quarter: 2015Q1

REPORT INFORMATION
  Report Type: Spontaneous
  Country: US (occurrence: US)
  Receive Date: 20120323
  Receipt Date: 20150306
  Transmission Date: 20150721
  Serious: Yes (Hospitalization, Other)
  Sender: FDA-Public Use
  Company Number: US-AMGEN-USASP2012017353

PATIENT
  Age: 48 Year
  Sex: Male

DRUGS (4)
  1. ACETAMINOPHEN. [Concomitant]
     Active Substance: ACETAMINOPHEN
     Dosage: UNK
  2. ENBREL [Suspect]
     Active Substance: ETANERCEPT
     Indication: ANKYLOSING SPONDYLITIS
     Dosage: UNK
     Route: 065
  3. ENBREL [Suspect]
     Active Substance: ETANERCEPT
     Indication: RHEUMATOID ARTHRITIS
     Dosage: 50 MG, QWK
     Route: 065
     Dates: start: 19990525
  4. ASPERCREME                         /00021207/ [Concomitant]
     Dosage: UNK
     Route: 061

REACTIONS (23)
  - Knee arthroplasty [Recovered/Resolved]
  - Dehydration [Recovered/Resolved]
  - Feeling cold [Not Recovered/Not Resolved]
  - Wrist surgery [Recovered/Resolved]
  - Shoulder operation [Recovered/Resolved]
  - Activities of daily living impaired [Not Recovered/Not Resolved]
  - Nephrolithiasis [Recovered/Resolved]
  - Bone marrow transplant [Recovered/Resolved]
  - Neuropathy peripheral [Not Recovered/Not Resolved]
  - Hip arthroplasty [Recovered/Resolved]
  - Pyrexia [Not Recovered/Not Resolved]
  - Weight decreased [Not Recovered/Not Resolved]
  - Pain [Recovered/Resolved]
  - Thrombosis [Recovered/Resolved]
  - Fall [Recovered/Resolved]
  - Bedridden [Recovered/Resolved]
  - Ureteric obstruction [Recovered/Resolved]
  - Musculoskeletal disorder [Not Recovered/Not Resolved]
  - Upper limb fracture [Not Recovered/Not Resolved]
  - Visual impairment [Not Recovered/Not Resolved]
  - Femur fracture [Recovered/Resolved]
  - Feeding disorder [Not Recovered/Not Resolved]
  - Hyperhidrosis [Not Recovered/Not Resolved]

NARRATIVE: CASE EVENT DATE: 2012
